FAERS Safety Report 10285925 (Version 3)
Quarter: 2014Q3

REPORT INFORMATION
  Report Type: Spontaneous
  Country: US (occurrence: US)
  Receive Date: 20140709
  Receipt Date: 20140808
  Transmission Date: 20150326
  Serious: No
  Sender: FDA-Public Use
  Company Number: US-AMGEN INC.-USASP2014050412

PATIENT
  Age: 3 Year
  Sex: Female

DRUGS (1)
  1. ENBREL [Suspect]
     Active Substance: ETANERCEPT
     Indication: RHEUMATOID ARTHRITIS
     Dosage: 25 MG, QWK
     Route: 065
     Dates: start: 20131201

REACTIONS (8)
  - Nasopharyngitis [Recovered/Resolved]
  - Joint stiffness [Recovered/Resolved]
  - Mobility decreased [Recovered/Resolved]
  - Inflammation [Recovered/Resolved]
  - Arthritis [Recovered/Resolved]
  - Condition aggravated [Unknown]
  - Musculoskeletal stiffness [Recovered/Resolved]
  - Influenza [Recovered/Resolved]

NARRATIVE: CASE EVENT DATE: 201312
